FAERS Safety Report 21232953 (Version 2)
Quarter: 2022Q3

REPORT INFORMATION
  Report Type: Spontaneous
  Country: JP (occurrence: JP)
  Receive Date: 20220819
  Receipt Date: 20220831
  Transmission Date: 20221027
  Serious: Yes (Death, Life-Threatening, Other)
  Sender: FDA-Public Use
  Company Number: JP-MSD-2207JPN000660JAA

PATIENT
  Age: 74 Year
  Sex: Male

DRUGS (1)
  1. KEYTRUDA [Suspect]
     Active Substance: PEMBROLIZUMAB
     Indication: Lung squamous cell carcinoma stage IV
     Dosage: 200 MILLIGRAM, Q3W
     Route: 041
     Dates: start: 20170906, end: 20180131

REACTIONS (2)
  - Pneumonitis [Fatal]
  - Malignant neoplasm progression [Not Recovered/Not Resolved]

NARRATIVE: CASE EVENT DATE: 20171220
